FAERS Safety Report 13560049 (Version 9)
Quarter: 2018Q4

REPORT INFORMATION
  Report Type: Report from Study
  Country: CA (occurrence: CA)
  Receive Date: 20170518
  Receipt Date: 20181214
  Transmission Date: 20190204
  Serious: Yes (Hospitalization, Other)
  Sender: FDA-Public Use
  Company Number: CA-BRISTOL-MYERS SQUIBB COMPANY-BMS-2017-038718

PATIENT
  Age: 72 Year
  Sex: Female

DRUGS (1)
  1. ABATACEPT [Suspect]
     Active Substance: ABATACEPT
     Indication: RHEUMATOID ARTHRITIS
     Dosage: 750 MG, Q4WK
     Route: 042
     Dates: start: 20090819

REACTIONS (26)
  - Malaise [Unknown]
  - Pain [Unknown]
  - Decreased appetite [Unknown]
  - Gastroenteritis viral [Unknown]
  - Fatigue [Unknown]
  - Confusional state [Unknown]
  - Diarrhoea [Recovering/Resolving]
  - Pallor [Unknown]
  - Abscess [Not Recovered/Not Resolved]
  - Anal infection [Not Recovered/Not Resolved]
  - Balance disorder [Unknown]
  - Pneumonia [Not Recovered/Not Resolved]
  - Dyspepsia [Unknown]
  - Vomiting [Unknown]
  - Gastric disorder [Unknown]
  - Gastrooesophageal reflux disease [Unknown]
  - Asthenia [Unknown]
  - Dizziness [Unknown]
  - Knee arthroplasty [Not Recovered/Not Resolved]
  - Post procedural complication [Not Recovered/Not Resolved]
  - Nausea [Unknown]
  - Weight decreased [Unknown]
  - Eructation [Unknown]
  - Fungal infection [Unknown]
  - Abdominal pain upper [Unknown]
  - Apathy [Unknown]

NARRATIVE: CASE EVENT DATE: 20170322
